FAERS Safety Report 5484740-1 (Version None)
Quarter: 2007Q4

REPORT INFORMATION
  Report Type: 
  Country: None (occurrence: None)
  Receive Date: 20071012
  Receipt Date: 20071002
  Transmission Date: 20080405
  Serious: Yes (Other)
  Sender: FDA-Public Use
  Company Number: US-PFIZER INC-2007083064

PATIENT
  Sex: Female
  Weight: 86.2 kg

DRUGS (10)
  1. CHANTIX [Suspect]
     Indication: SMOKING CESSATION THERAPY
     Route: 048
  2. ALL OTHER THERAPEUTIC PRODUCTS [Concomitant]
  3. CALCIUM [Concomitant]
  4. VITAMIN D [Concomitant]
  5. CYMBALTA [Concomitant]
  6. HYDROCODONE [Concomitant]
  7. FUROSEMIDE [Concomitant]
  8. POTASSIUM CHLORIDE [Concomitant]
  9. ALPRAZOLAM [Concomitant]
  10. SIMVASTATIN [Concomitant]

REACTIONS (3)
  - HEADACHE [None]
  - MELAENA [None]
  - STOMACH DISCOMFORT [None]
